FAERS Safety Report 6232352-4 (Version None)
Quarter: 2009Q2

REPORT INFORMATION
  Report Type: 
  Country: None (occurrence: None)
  Receive Date: 20090615
  Receipt Date: 20090603
  Transmission Date: 20091009
  Serious: Yes (Hospitalization)
  Sender: FDA-Public Use
  Company Number: 2009-02196

PATIENT
  Age: 73 Year
  Sex: Male
  Weight: 52.2 kg

DRUGS (2)
  1. VELCADE [Suspect]
     Indication: NON-SMALL CELL LUNG CANCER
     Dosage: 2.8 MG/M2, INTRAVENOUS
     Route: 042
     Dates: start: 20090413, end: 20090527
  2. ALIMTA [Suspect]
     Indication: NON-SMALL CELL LUNG CANCER
     Dosage: 795 MG/M2, INTRAVENOUS
     Route: 042
     Dates: start: 20090413, end: 20090527

REACTIONS (8)
  - CONDITION AGGRAVATED [None]
  - COUGH [None]
  - DEPRESSION [None]
  - DYSPNOEA [None]
  - FALL [None]
  - OESOPHAGITIS [None]
  - ORAL CANDIDIASIS [None]
  - WHEEZING [None]
